FAERS Safety Report 4413836-8 (Version None)
Quarter: 2004Q3

REPORT INFORMATION
  Report Type: 
  Country: None (occurrence: None)
  Receive Date: 20040803
  Receipt Date: 20040728
  Transmission Date: 20050211
  Serious: Yes (Other)
  Sender: FDA-Public Use
  Company Number: 200417468GDDC

PATIENT
  Age: 68 Year
  Sex: Male

DRUGS (5)
  1. ARAVA [Suspect]
     Indication: RHEUMATOID ARTHRITIS
     Route: 048
     Dates: start: 20030701, end: 20040722
  2. METHOTREXATE [Concomitant]
     Route: 048
  3. FOLIC ACID [Concomitant]
     Route: 048
  4. ZOTON [Concomitant]
     Dosage: DOSE: UNK
  5. LUSTRAL [Concomitant]
     Dosage: DOSE: UNK

REACTIONS (3)
  - BIOPSY SKIN ABNORMAL [None]
  - CUTANEOUS LUPUS ERYTHEMATOSUS [None]
  - IMMUNOLOGY TEST ABNORMAL [None]
